FAERS Safety Report 10026961 (Version 1)
Quarter: 2014Q1

REPORT INFORMATION
  Report Type: Spontaneous
  Country: GB (occurrence: None)
  Receive Date: 20140318
  Receipt Date: 20140318
  Transmission Date: 20141002
  Serious: Yes (Other)
  Sender: FDA-Public Use
  Company Number: 2014GB0133

PATIENT
  Age: 37 Year
  Sex: Male

DRUGS (1)
  1. ANAKINRA [Suspect]
     Indication: CRANIOCEREBRAL INJURY
     Dosage: 100 MG, 1 IN 24 HR
     Route: 058

REACTIONS (3)
  - Lower respiratory tract infection [None]
  - Atelectasis [None]
  - Bronchial secretion retention [None]
